FAERS Safety Report 8196965-5 (Version None)
Quarter: 2012Q1

REPORT INFORMATION
  Report Type: 
  Country: None (occurrence: None)
  Receive Date: 20120227
  Receipt Date: 20111201
  Transmission Date: 20120608
  Serious: Yes (Other)
  Sender: FDA-Public Use
  Company Number: 335481

PATIENT
  Age: 51 Year
  Sex: Male

DRUGS (2)
  1. VICTOZA [Suspect]
     Indication: GLUCOSE TOLERANCE IMPAIRED
     Dosage: 0.6 MG, QD, SUBCUTANEOUS 1.8 MG, QD, SUBCUTANEOUS
     Route: 058
     Dates: start: 20110623, end: 20110801
  2. VICTOZA [Suspect]
     Indication: GLUCOSE TOLERANCE IMPAIRED
     Dosage: 0.6 MG, QD, SUBCUTANEOUS 1.8 MG, QD, SUBCUTANEOUS
     Route: 058
     Dates: end: 20110805

REACTIONS (1)
  - PANCREATITIS ACUTE [None]
